FAERS Safety Report 7374704-5 (Version None)
Quarter: 2011Q1

REPORT INFORMATION
  Report Type: 
  Country: None (occurrence: None)
  Receive Date: 20110325
  Receipt Date: 20100812
  Transmission Date: 20110831
  Serious: No
  Sender: FDA-Public Use
  Company Number: US-MYLANLABS-2010S1014862

PATIENT
  Age: 39 Year
  Sex: Male

DRUGS (5)
  1. PRISTIQ [Concomitant]
  2. RANITIDINE [Concomitant]
  3. LORAZEPAM [Concomitant]
  4. FENTANYL-100 [Suspect]
     Indication: PAIN
     Dosage: Q48H
     Route: 062
     Dates: start: 20100501
  5. HYDROCODONE BITARTRATE [Concomitant]

REACTIONS (6)
  - NAUSEA [None]
  - LOSS OF LIBIDO [None]
  - PARAESTHESIA [None]
  - DRUG WITHDRAWAL SYNDROME [None]
  - FEELING ABNORMAL [None]
  - INSOMNIA [None]
